FAERS Safety Report 6556015-0 (Version None)
Quarter: 2010Q1

REPORT INFORMATION
  Report Type: 
  Country: None (occurrence: None)
  Receive Date: 20100128
  Receipt Date: 20090209
  Transmission Date: 20100710
  Serious: Yes (Hospitalization)
  Sender: FDA-Public Use
  Company Number: US-TEVA-183511USA

PATIENT
  Sex: Female

DRUGS (4)
  1. COPAXONE [Suspect]
     Indication: MULTIPLE SCLEROSIS
     Route: 058
     Dates: start: 20081001
  2. IBUPROFEN [Suspect]
  3. VITAMINS NOS [Concomitant]
  4. BIRTH CONTROL PILLS (NOS) [Concomitant]

REACTIONS (1)
  - RASH GENERALISED [None]
